FAERS Safety Report 9668873 (Version 3)
Quarter: 2014Q1

REPORT INFORMATION
  Report Type: Spontaneous
  Country: JP (occurrence: JP)
  Receive Date: 20131105
  Receipt Date: 20140101
  Transmission Date: 20141002
  Serious: Yes (Hospitalization)
  Sender: FDA-Public Use
  Company Number: PHHY2013JP124290

PATIENT
  Age: 63 Year
  Sex: Female

DRUGS (4)
  1. ZOMETA [Suspect]
     Indication: METASTASES TO BREAST
     Dates: start: 200605, end: 20120521
  2. PREDNISOLONE [Concomitant]
     Dosage: 1 MG, 2 TABLETS PER ADMINISTRATION
  3. RANMARK [Concomitant]
     Dates: start: 20131023
  4. TS-1 [Concomitant]
     Dates: start: 201005, end: 20120709

REACTIONS (10)
  - Osteonecrosis of jaw [Recovering/Resolving]
  - Tooth loss [Unknown]
  - Pain [Unknown]
  - Exposed bone in jaw [Unknown]
  - Gingival erythema [Unknown]
  - Swelling [Unknown]
  - Gingival pain [Unknown]
  - Aphagia [Unknown]
  - Gingivitis [Unknown]
  - Bacterial infection [Unknown]
